FAERS Safety Report 6555717-X (Version None)
Quarter: 2010Q1

REPORT INFORMATION
  Report Type: 
  Country: None (occurrence: None)
  Receive Date: 20100128
  Receipt Date: 20100118
  Transmission Date: 20100710
  Serious: Yes (Other)
  Sender: FDA-Public Use
  Company Number: US-ELI_LILLY_AND_COMPANY-US201001003882

PATIENT
  Age: 86 Year
  Sex: Female

DRUGS (4)
  1. CYMBALTA [Suspect]
     Indication: DEPRESSION
     Dosage: 60 MG, DAILY (1/D)
  2. CYMBALTA [Suspect]
     Dosage: 90 MG, DAILY (1/D)
  3. ZYPREXA [Suspect]
     Dosage: 5 MG, DAILY (1/D)
  4. SEROQUEL [Concomitant]
     Dosage: 50 MG, UNK

REACTIONS (7)
  - BLOOD UREA INCREASED [None]
  - CATATONIA [None]
  - CEREBROVASCULAR ACCIDENT [None]
  - CRYING [None]
  - DEPRESSION [None]
  - DRUG INEFFECTIVE [None]
  - RENAL DISORDER [None]
